FAERS Safety Report 21952051 (Version 5)
Quarter: 2024Q3

REPORT INFORMATION
  Report Type: Spontaneous
  Country: US (occurrence: US)
  Receive Date: 20230203
  Receipt Date: 20240712
  Transmission Date: 20241016
  Serious: Yes (Death)
  Sender: PFIZER
  Company Number: US-PFIZER INC-PV202300020403

PATIENT
  Age: 74 Year
  Sex: Female

DRUGS (12)
  1. IBRANCE [Suspect]
     Active Substance: PALBOCICLIB
     Indication: Breast cancer female
     Dosage: 100 MG
  2. IBRANCE [Suspect]
     Active Substance: PALBOCICLIB
     Dosage: 75 MG DAILY X 21 DAYS
     Route: 048
     Dates: start: 20240418, end: 20240709
  3. PANTOPRAZOLE [Concomitant]
     Active Substance: PANTOPRAZOLE
     Dosage: UNK
  4. ESCITALOPRAM [Concomitant]
     Active Substance: ESCITALOPRAM OXALATE
     Dosage: UNK
  5. FUROSEMIDE [Concomitant]
     Active Substance: FUROSEMIDE
     Dosage: UNK
  6. POTASSIUM CHLORIDE [Concomitant]
     Active Substance: POTASSIUM CHLORIDE
     Dosage: 20 MEQ
  7. ASPIRIN [Concomitant]
     Active Substance: ASPIRIN
     Dosage: 81 MG
  8. VITAMIN B COMPLEX [Concomitant]
     Active Substance: CYANOCOBALAMIN\DEXPANTHENOL\NIACINAMIDE\PYRIDOXINE HYDROCHLORIDE\RIBOFLAVIN 5^-PHOSPHATE SODIUM\THIA
     Dosage: UNK
  9. AMLODIPINE [Concomitant]
     Active Substance: AMLODIPINE BESYLATE
     Dosage: 10 MG
  10. ATORVASTATIN [Concomitant]
     Active Substance: ATORVASTATIN
     Dosage: 10 MG
  11. VITAMIN D NOS [Concomitant]
     Active Substance: CHOLECALCIFEROL\ERGOCALCIFEROL
     Dosage: 1000 IU
  12. RESTASIS [Concomitant]
     Active Substance: CYCLOSPORINE
     Dosage: RESTASIS 0.05% DROPS

REACTIONS (2)
  - Death [Fatal]
  - Malaise [Unknown]

NARRATIVE: CASE EVENT DATE: 20240709
